FAERS Safety Report 21591903 (Version 4)
Quarter: 2023Q2

REPORT INFORMATION
  Report Type: Spontaneous
  Country: JP (occurrence: JP)
  Receive Date: 20221114
  Receipt Date: 20230410
  Transmission Date: 20230721
  Serious: Yes (Other)
  Sender: FDA-Public Use
  Company Number: JP-TAKEDA-2022TUS084990

PATIENT
  Age: 33 Year
  Sex: Female

DRUGS (1)
  1. FEBUXOSTAT [Suspect]
     Active Substance: FEBUXOSTAT
     Indication: Tumour lysis syndrome
     Dosage: 40 MILLIGRAM, QD
     Route: 048

REACTIONS (3)
  - Crystal urine present [Unknown]
  - Drug ineffective [Unknown]
  - Underdose [Unknown]
